FAERS Safety Report 7328401-2 (Version None)
Quarter: 2011Q1

REPORT INFORMATION
  Report Type: 
  Country: None (occurrence: None)
  Receive Date: 20110303
  Receipt Date: 20110223
  Transmission Date: 20110831
  Serious: Yes (Hospitalization)
  Sender: FDA-Public Use
  Company Number: FR-SANOFI-AVENTIS-2011SA007989

PATIENT
  Age: 59 Year
  Sex: Male

DRUGS (6)
  1. COTAREG ^NOVARTIS^ [Concomitant]
     Dosage: DOSE 12.5/160 MG
     Route: 048
  2. PREVISCAN [Concomitant]
     Route: 048
  3. MULTAQ [Suspect]
     Route: 048
     Dates: start: 20101108, end: 20110201
  4. NEBIVOLOL [Concomitant]
     Route: 048
  5. LASIX [Concomitant]
     Route: 048
  6. NOVONORM [Concomitant]
     Route: 048

REACTIONS (2)
  - UNDERDOSE [None]
  - RENAL FAILURE [None]
